FAERS Safety Report 18195692 (Version 1)
Quarter: 2020Q3

REPORT INFORMATION
  Report Type: Report from Study
  Country: SA (occurrence: SA)
  Receive Date: 20200826
  Receipt Date: 20200826
  Transmission Date: 20201103
  Serious: Yes (Other)
  Sender: FDA-Public Use
  Company Number: SA-SUN PHARMACEUTICAL INDUSTRIES LTD-2020RR-258641

PATIENT

DRUGS (1)
  1. FINGOLIMOD. [Suspect]
     Active Substance: FINGOLIMOD
     Indication: RELAPSING-REMITTING MULTIPLE SCLEROSIS
     Dosage: 0.5 MILLIGRAM, DAILY
     Route: 048

REACTIONS (1)
  - Treatment noncompliance [Unknown]
